FAERS Safety Report 11344584 (Version 1)
Quarter: 2015Q3

REPORT INFORMATION
  Report Type: Spontaneous
  Country: US (occurrence: US)
  Receive Date: 20150806
  Receipt Date: 20150806
  Transmission Date: 20151125
  Serious: No
  Sender: FDA-Public Use
  Company Number: US-ENDO PHARMACEUTICALS INC.-PRED20140044

PATIENT
  Sex: Female

DRUGS (4)
  1. PREDNISONE TABLETS 1MG [Suspect]
     Active Substance: PREDNISONE
     Indication: ENDOCRINE OPHTHALMOPATHY
     Route: 048
     Dates: start: 20140421, end: 20140702
  2. PREDNISONE TABLETS 5MG [Suspect]
     Active Substance: PREDNISONE
     Indication: ENDOCRINE OPHTHALMOPATHY
     Route: 048
     Dates: end: 201404
  3. PREDNISONE TABLETS 5MG [Suspect]
     Active Substance: PREDNISONE
     Route: 048
     Dates: start: 20140703
  4. ALPRAZOLAM. [Concomitant]
     Active Substance: ALPRAZOLAM
     Indication: ANXIETY
     Dosage: UNK
     Route: 048

REACTIONS (7)
  - Headache [Unknown]
  - Anxiety [Unknown]
  - Depression [Unknown]
  - Mental disorder [Unknown]
  - Non-cardiac chest pain [Recovering/Resolving]
  - Glucose tolerance impaired [Unknown]
  - Pain [Unknown]

NARRATIVE: CASE EVENT DATE: 2014
